FAERS Safety Report 23295423 (Version 1)
Quarter: 2023Q4

REPORT INFORMATION
  Report Type: Spontaneous
  Country: US (occurrence: None)
  Receive Date: 20231213
  Receipt Date: 20231213
  Transmission Date: 20240110
  Serious: Yes (Other)
  Sender: FDA-Public Use
  Company Number: None

PATIENT
  Age: 54 Year
  Sex: Female

DRUGS (5)
  1. BENLYSTA [Suspect]
     Active Substance: BELIMUMAB
     Indication: Product used for unknown indication
     Dosage: FREQUENCY : DAILY;?
     Route: 058
     Dates: start: 20231207
  2. AIMOVIG [Concomitant]
     Active Substance: ERENUMAB-AOOE
  3. IMITREX [Concomitant]
     Active Substance: SUMATRIPTAN SUCCINATE
  4. IMURAN [Concomitant]
     Active Substance: AZATHIOPRINE
  5. LEVOTHYROXINE [Concomitant]
     Active Substance: LEVOTHYROXINE

REACTIONS (6)
  - Hypersensitivity [None]
  - Hypoaesthesia [None]
  - Vomiting [None]
  - Dyspnoea [None]
  - Headache [None]
  - Brain fog [None]

NARRATIVE: CASE EVENT DATE: 20231213
